FAERS Safety Report 21571518 (Version 1)
Quarter: 2022Q4

REPORT INFORMATION
  Report Type: Spontaneous
  Country: US (occurrence: None)
  Receive Date: 20221107
  Receipt Date: 20221107
  Transmission Date: 20230113
  Serious: Yes (Death)
  Sender: FDA-Public Use
  Company Number: None

PATIENT
  Age: 76 Year
  Sex: Male
  Weight: 89.81 kg

DRUGS (1)
  1. ZOLEDRONIC ACID [Suspect]
     Active Substance: ZOLEDRONIC ACID
     Indication: Bone density decreased
     Dates: start: 20190225, end: 20210909

REACTIONS (8)
  - Hypervolaemia [None]
  - Cardiac failure [None]
  - Osteomyelitis [None]
  - Osteonecrosis [None]
  - Septic shock [None]
  - Bacteraemia [None]
  - Renal impairment [None]
  - Encephalopathy [None]

NARRATIVE: CASE EVENT DATE: 20220720
